FAERS Safety Report 5554696-1 (Version None)
Quarter: 2007Q4

REPORT INFORMATION
  Report Type: 
  Country: None (occurrence: None)
  Receive Date: 20071213
  Receipt Date: 20070801
  Transmission Date: 20080405
  Serious: No
  Sender: FDA-Public Use
  Company Number: US-AMGEN-KDL237099

PATIENT
  Sex: Female

DRUGS (2)
  1. ENBREL [Suspect]
     Indication: RHEUMATOID ARTHRITIS
     Route: 058
     Dates: start: 20070601
  2. PLAQUENIL [Concomitant]
     Route: 048
     Dates: start: 20040101

REACTIONS (5)
  - ABNORMAL SENSATION IN EYE [None]
  - ALOPECIA [None]
  - EAR DISCOMFORT [None]
  - HEADACHE [None]
  - SINUS HEADACHE [None]
